FAERS Safety Report 10333663 (Version 6)
Quarter: 2014Q3

REPORT INFORMATION
  Report Type: Report from Study
  Country: CA (occurrence: CA)
  Receive Date: 20140723
  Receipt Date: 20140924
  Transmission Date: 20150326
  Serious: Yes (Other)
  Sender: FDA-Public Use
  Company Number: CA-ROCHE-1104662

PATIENT
  Age: 73 Year
  Sex: Male
  Weight: 63.3 kg

DRUGS (6)
  1. TYLENOL ARTHRITIS PAIN [Concomitant]
     Active Substance: ACETAMINOPHEN
  2. OMEPRAZOLE. [Concomitant]
     Active Substance: OMEPRAZOLE
  3. WARFARIN [Concomitant]
     Active Substance: WARFARIN
  4. ACTEMRA [Suspect]
     Active Substance: TOCILIZUMAB
     Indication: RHEUMATOID ARTHRITIS
     Route: 042
     Dates: start: 20120814
  5. FERROUS GLUCONATE [Concomitant]
     Active Substance: FERROUS GLUCONATE
  6. FOLIC ACID. [Concomitant]
     Active Substance: FOLIC ACID

REACTIONS (9)
  - Cataract [Unknown]
  - Arthralgia [Recovering/Resolving]
  - Pain in extremity [Recovering/Resolving]
  - Nasopharyngitis [Unknown]
  - Upper respiratory tract infection [Recovering/Resolving]
  - Weight abnormal [Not Recovered/Not Resolved]
  - Hypotension [Unknown]
  - Pneumonia [Recovering/Resolving]
  - Pain in extremity [Recovered/Resolved]

NARRATIVE: CASE EVENT DATE: 20120817
